FAERS Safety Report 24033351 (Version 6)
Quarter: 2024Q3

REPORT INFORMATION
  Report Type: Spontaneous
  Country: US (occurrence: US)
  Receive Date: 20240701
  Receipt Date: 20240826
  Transmission Date: 20241017
  Serious: No
  Sender: ROCHE
  Company Number: US-ROCHE-10000002673

PATIENT

DRUGS (1)
  1. POLIVY [Suspect]
     Active Substance: POLATUZUMAB VEDOTIN-PIIQ
     Indication: Product used for unknown indication
     Dosage: REPORTER #1 STATED THEY WERE 30 MG VIALS AND ARE TO BE RECONSTITUTED WITH 1.8 ML OF STERILE WATER
     Route: 065

REACTIONS (2)
  - Product preparation issue [Unknown]
  - No adverse event [Unknown]
